FAERS Safety Report 5124683-6 (Version None)
Quarter: 2006Q4

REPORT INFORMATION
  Report Type: 
  Country: None (occurrence: None)
  Receive Date: 20061006
  Receipt Date: 20061006
  Transmission Date: 20070319
  Serious: Yes (Other)
  Sender: FDA-Public Use
  Company Number: None

PATIENT
  Age: 45 Year
  Sex: Female
  Weight: 86.1834 kg

DRUGS (1)
  1. HUMIRA [Suspect]
     Indication: RHEUMATOID ARTHRITIS
     Dosage: 40 MG 2X A MONTH SQ
     Route: 058
     Dates: start: 20030101, end: 20061005

REACTIONS (3)
  - BURNING SENSATION [None]
  - CONFUSIONAL STATE [None]
  - RASH [None]
